FAERS Safety Report 4459525-5 (Version None)
Quarter: 2004Q3

REPORT INFORMATION
  Report Type: 
  Country: None (occurrence: None)
  Receive Date: 20040910
  Receipt Date: 20040614
  Transmission Date: 20050211
  Serious: No
  Sender: FDA-Public Use
  Company Number: 2004219305US

PATIENT
  Age: 29 Year
  Sex: Female
  Weight: 52.2 kg

DRUGS (2)
  1. BEXTRA [Suspect]
     Indication: NEUROPATHIC PAIN
     Dosage: QD
     Dates: start: 20030901, end: 20031101
  2. NEURONTIN [Concomitant]

REACTIONS (1)
  - PAIN EXACERBATED [None]
